FAERS Safety Report 5087230-3 (Version None)
Quarter: 2006Q3

REPORT INFORMATION
  Report Type: 
  Country: None (occurrence: None)
  Receive Date: 20060821
  Receipt Date: 20060807
  Transmission Date: 20061208
  Serious: Yes (Other)
  Sender: FDA-Public Use
  Company Number: CHNY2006BR02343

PATIENT
  Age: 23 Year
  Sex: Female
  Weight: 55 kg

DRUGS (2)
  1. CIBALENAA (NCH) (CAFFEINE CITRATE, ACETYLSALICYLIC ACID, ACETAMINOPHEN [Suspect]
     Indication: HEADACHE
     Dosage: 2 DF, BID, ORAL
     Route: 048
     Dates: start: 20060804, end: 20060804
  2. LEVONORGESTREL E/ETHINYLESTRADIOL (ETHINYLESTRADIOL, LEVONORGESTREL) [Concomitant]

REACTIONS (1)
  - VAGINAL HAEMORRHAGE [None]
